FAERS Safety Report 16713221 (Version 1)
Quarter: 2019Q3

REPORT INFORMATION
  Report Type: Spontaneous
  Country: US (occurrence: US)
  Receive Date: 20190817
  Receipt Date: 20190817
  Transmission Date: 20191004
  Serious: No
  Sender: FDA-Public Use
  Company Number: US-JNJFOC-20190813008

PATIENT
  Sex: Male

DRUGS (3)
  1. MYOBLOC /00761001/ [Suspect]
     Active Substance: DIACEREIN
     Indication: PAIN
     Dosage: HAD BEEN TAKING ONE, NOW HAVE UPPED DOSAGE TO 2
     Route: 065
  2. TYLENOL EXTRA STRENGTH [Suspect]
     Active Substance: ACETAMINOPHEN
     Indication: ARTHRALGIA
     Route: 048
  3. MYOBLOC                            /00761001/ [Suspect]
     Active Substance: DIACEREIN
     Route: 065

REACTIONS (1)
  - Oedema peripheral [Unknown]
